FAERS Safety Report 4851312-9 (Version None)
Quarter: 2005Q4

REPORT INFORMATION
  Report Type: 
  Country: None (occurrence: None)
  Receive Date: 20051208
  Receipt Date: 20051128
  Transmission Date: 20060501
  Serious: Yes (Life-Threatening)
  Sender: FDA-Public Use
  Company Number: HQWYE508411NOV05

PATIENT
  Age: 70 Year
  Sex: Female

DRUGS (7)
  1. MYLOTARG [Suspect]
     Indication: ACUTE MYELOID LEUKAEMIA
     Dosage: 9 MG/M^2 1X PER 1 DAY INTRAVENOUS DRIP
     Route: 041
     Dates: start: 20051006, end: 20051006
  2. MYLOTARG [Suspect]
     Indication: ACUTE MYELOID LEUKAEMIA
     Dosage: 9 MG/M^2 1X PER 1 DAY INTRAVENOUS DRIP
     Route: 041
     Dates: start: 20051020, end: 20051020
  3. OZEX (TOSUFLOXACIN TOSILATE) [Concomitant]
  4. ITRACONAZOLE [Concomitant]
  5. COTRIM [Concomitant]
  6. URSODIOL [Concomitant]
  7. ACTOS [Concomitant]

REACTIONS (5)
  - FEBRILE NEUTROPENIA [None]
  - INTERSTITIAL LUNG DISEASE [None]
  - PNEUMONIA FUNGAL [None]
  - TUMOUR LYSIS SYNDROME [None]
  - VIRAL INFECTION [None]
